FAERS Safety Report 4356547-X (Version None)
Quarter: 2004Q2

REPORT INFORMATION
  Report Type: 
  Country: None (occurrence: None)
  Receive Date: 20040511
  Receipt Date: 20040426
  Transmission Date: 20050107
  Serious: Yes (Death)
  Sender: FDA-Public Use
  Company Number: 2004S1001203

PATIENT
  Age: 79 Year
  Sex: Female

DRUGS (8)
  1. CLOZAPINE [Suspect]
     Dosage: 50MG TID, ORAL
     Route: 048
     Dates: start: 20001101
  2. RISPERIDONE [Concomitant]
  3. FUROSEMIDE [Concomitant]
  4. POTASSIUM CHLORIDE [Concomitant]
  5. BENAZEPRIL HCL [Concomitant]
  6. AMLODIPINE [Concomitant]
  7. LANSOPRAZOLE [Concomitant]
  8. LACTASE [Concomitant]

REACTIONS (1)
  - DEATH [None]
